FAERS Safety Report 7944731-5 (Version None)
Quarter: 2011Q4

REPORT INFORMATION
  Report Type: 
  Country: None (occurrence: None)
  Receive Date: 20111129
  Receipt Date: 20111123
  Transmission Date: 20120403
  Serious: Yes (Other)
  Sender: FDA-Public Use
  Company Number: BR-PFIZER INC-2011286720

PATIENT
  Age: 36 Year
  Sex: Male
  Weight: 85 kg

DRUGS (2)
  1. VARENICLINE TARTRATE [Suspect]
     Indication: SMOKING CESSATION THERAPY
     Dosage: UNK
     Route: 048
     Dates: start: 20111001, end: 20110101
  2. VARENICLINE TARTRATE [Suspect]
     Dosage: 2 TABLETS PER DAY
     Route: 048
     Dates: start: 20110101, end: 20111101

REACTIONS (2)
  - HEADACHE [None]
  - VIITH NERVE PARALYSIS [None]
